FAERS Safety Report 8275313-6 (Version None)
Quarter: 2012Q2

REPORT INFORMATION
  Report Type: 
  Country: None (occurrence: None)
  Receive Date: 20120411
  Receipt Date: 20120406
  Transmission Date: 20120825
  Serious: Yes (Hospitalization, Disabling, Congenital Anomaly, Other)
  Sender: FDA-Public Use
  Company Number: US-PFIZER INC-2010109640

PATIENT
  Sex: Male
  Weight: 2.7 kg

DRUGS (3)
  1. XANAX [Concomitant]
     Dosage: UNK
     Route: 064
     Dates: end: 19991209
  2. ZOLOFT [Suspect]
     Dosage: UNK
     Route: 064
     Dates: end: 19991209
  3. SUDAFED 12 HOUR [Concomitant]
     Indication: HEADACHE
     Dosage: UNK
     Route: 064

REACTIONS (26)
  - VENTRICULAR HYPERTROPHY [None]
  - GLIOSIS [None]
  - MOTOR DEVELOPMENTAL DELAY [None]
  - DILATATION VENTRICULAR [None]
  - CEREBRAL PALSY [None]
  - CENTRAL AUDITORY PROCESSING DISORDER [None]
  - ATRIAL SEPTAL DEFECT [None]
  - BUNDLE BRANCH BLOCK RIGHT [None]
  - CEREBROVASCULAR ACCIDENT [None]
  - DEVELOPMENTAL DELAY [None]
  - TRICUSPID VALVE SCLEROSIS [None]
  - VENTRICULAR SEPTAL DEFECT [None]
  - PULMONARY VALVE INCOMPETENCE [None]
  - PULMONARY ARTERY DILATATION [None]
  - RESPIRATORY DISTRESS [None]
  - CARDIOMEGALY [None]
  - FOETAL EXPOSURE DURING PREGNANCY [None]
  - PATENT DUCTUS ARTERIOSUS [None]
  - FAILURE TO THRIVE [None]
  - MITRAL VALVE INCOMPETENCE [None]
  - LEFT ATRIAL DILATATION [None]
  - FEEDING DISORDER NEONATAL [None]
  - TRICUSPID VALVE INCOMPETENCE [None]
  - OTITIS MEDIA [None]
  - WEIGHT GAIN POOR [None]
  - SPEECH DISORDER DEVELOPMENTAL [None]
